FAERS Safety Report 5790397-2 (Version None)
Quarter: 2008Q2

REPORT INFORMATION
  Report Type: 
  Country: None (occurrence: None)
  Receive Date: 20080626
  Receipt Date: 20080428
  Transmission Date: 20081010
  Serious: No
  Sender: FDA-Public Use
  Company Number: A0725004A

PATIENT
  Age: 37 Year
  Sex: Female

DRUGS (2)
  1. ALLI [Suspect]
     Dates: start: 20080301
  2. MULTI-VITAMIN [Concomitant]

REACTIONS (5)
  - FLATULENCE [None]
  - MUSCLE SPASMS [None]
  - PHARMACEUTICAL PRODUCT COMPLAINT [None]
  - STEATORRHOEA [None]
  - THERAPEUTIC RESPONSE UNEXPECTED [None]
